FAERS Safety Report 18313383 (Version 1)
Quarter: 2020Q3

REPORT INFORMATION
  Report Type: Spontaneous
  Country: GB (occurrence: GB)
  Receive Date: 20200925
  Receipt Date: 20200925
  Transmission Date: 20201103
  Serious: Yes (Disabling)
  Sender: FDA-Public Use
  Company Number: GB-TEVA-2020-GB-1830402

PATIENT
  Age: 54 Year
  Sex: Male

DRUGS (9)
  1. VORICONAZOLE. [Suspect]
     Active Substance: VORICONAZOLE
     Indication: MENINGITIS CRYPTOCOCCAL
     Dosage: 700MG
     Route: 048
     Dates: start: 20200511, end: 20200602
  2. VORICONAZOLE. [Suspect]
     Active Substance: VORICONAZOLE
     Indication: MENINGITIS CRYPTOCOCCAL
     Dosage: 600MG
     Route: 048
     Dates: start: 20200424, end: 20200510
  3. AMBISOME [Concomitant]
     Active Substance: AMPHOTERICIN B
     Dosage: 350MG
     Route: 042
     Dates: end: 20200415
  4. FLUCYTOSINE. [Concomitant]
     Active Substance: FLUCYTOSINE
     Dosage: 2.5G/250ML
     Route: 042
     Dates: end: 20200410
  5. COLECALCIFEROL [Concomitant]
     Active Substance: CHOLECALCIFEROL
     Dosage: 800 IU
     Route: 048
  6. VORICONAZOLE. [Suspect]
     Active Substance: VORICONAZOLE
     Indication: MENINGITIS CRYPTOCOCCAL
     Dosage: 760MG
     Route: 048
     Dates: start: 20200603, end: 20200623
  7. LEVETIRACETAM. [Concomitant]
     Active Substance: LEVETIRACETAM
     Dosage: 500MG
  8. VORICONAZOLE. [Suspect]
     Active Substance: VORICONAZOLE
     Indication: MENINGITIS CRYPTOCOCCAL
     Dosage: 400MG
     Route: 048
     Dates: start: 20200409, end: 20200423
  9. VORICONAZOLE. [Suspect]
     Active Substance: VORICONAZOLE
     Indication: MENINGITIS CRYPTOCOCCAL
     Dosage: 900MG
     Route: 048
     Dates: start: 20200624, end: 20200810

REACTIONS (5)
  - Hypoaesthesia [Recovered/Resolved]
  - Paraesthesia [Recovered/Resolved with Sequelae]
  - Hypophosphataemia [Recovering/Resolving]
  - Photosensitivity reaction [Recovering/Resolving]
  - Erythema [Recovering/Resolving]

NARRATIVE: CASE EVENT DATE: 20200409
